FAERS Safety Report 5982271-3 (Version None)
Quarter: 2008Q4

REPORT INFORMATION
  Report Type: 
  Country: None (occurrence: None)
  Receive Date: 20081208
  Receipt Date: 20081204
  Transmission Date: 20090506
  Serious: Yes (Disabling)
  Sender: FDA-Public Use
  Company Number: D0059616A

PATIENT
  Age: 59 Year
  Sex: Female
  Weight: 65 kg

DRUGS (5)
  1. VIANI [Suspect]
     Indication: ASTHMA
     Dosage: 300MCG UNKNOWN
     Route: 055
     Dates: start: 20001201, end: 20081001
  2. SYMBICORT [Concomitant]
     Dosage: 164.5MCG UNKNOWN
     Route: 055
  3. LEVOTHYROXINE SODIUM [Concomitant]
     Dosage: 150MCG PER DAY
     Route: 048
  4. NEBILET [Concomitant]
     Route: 048
  5. ALBUTEROL SULFATE [Concomitant]
     Route: 055

REACTIONS (2)
  - DYSPHONIA [None]
  - GINGIVAL RECESSION [None]
